FAERS Safety Report 8109492-8 (Version None)
Quarter: 2012Q1

REPORT INFORMATION
  Report Type: 
  Country: None (occurrence: None)
  Receive Date: 20120202
  Receipt Date: 20120112
  Transmission Date: 20120608
  Serious: No
  Sender: FDA-Public Use
  Company Number: US-AMGEN-USASP2011069545

PATIENT
  Age: 64 Year
  Sex: Female
  Weight: 82.993 kg

DRUGS (6)
  1. SIMVASTATIN [Concomitant]
     Indication: LIPIDS
     Dosage: UNK UNK, QD
     Route: 048
  2. ENBREL [Suspect]
     Indication: RHEUMATOID ARTHRITIS
     Dosage: 50 MG, QWK
     Route: 058
     Dates: start: 20111215
  3. LISINOPRIL HCT                     /01613901/ [Concomitant]
     Indication: HYPERTENSION
     Dosage: QD, 20/125
     Route: 048
     Dates: start: 20110101
  4. GLIPIZIDE [Concomitant]
     Indication: DIABETES MELLITUS
     Dosage: 25 MG, QD
     Route: 048
     Dates: start: 20110901
  5. METHOTREXATE [Concomitant]
     Indication: RHEUMATOID ARTHRITIS
     Dosage: 20 MG, QWK
     Route: 048
     Dates: start: 20071002
  6. PERCOCET [Concomitant]
     Indication: PAIN
     Dosage: TID 10/325
     Route: 048
     Dates: start: 20100916

REACTIONS (5)
  - INSOMNIA [None]
  - UPPER RESPIRATORY TRACT INFECTION [None]
  - FATIGUE [None]
  - INJECTION SITE PAIN [None]
  - INFECTION SUSCEPTIBILITY INCREASED [None]
